FAERS Safety Report 19765105 (Version 3)
Quarter: 2021Q3

REPORT INFORMATION
  Report Type: Spontaneous
  Country: US (occurrence: AR)
  Receive Date: 20210830
  Receipt Date: 20210909
  Transmission Date: 20211014
  Serious: Yes (Hospitalization)
  Sender: FDA-Public Use
  Company Number: AR-BIOMARINAP-AR-2021-138298

PATIENT
  Age: 6 Year
  Sex: Female

DRUGS (1)
  1. ALDURAZYME [Suspect]
     Active Substance: LARONIDASE
     Indication: MUCOPOLYSACCHARIDOSIS I
     Dosage: 5 DOSAGE FORM, QW
     Route: 041

REACTIONS (3)
  - Respiratory tract infection [Recovering/Resolving]
  - Oxygen saturation abnormal [Recovering/Resolving]
  - Unevaluable event [Unknown]

NARRATIVE: CASE EVENT DATE: 20210817
